FAERS Safety Report 9665943 (Version 1)
Quarter: 2013Q4

REPORT INFORMATION
  Report Type: Spontaneous
  Country: DE (occurrence: DE)
  Receive Date: 20131104
  Receipt Date: 20131104
  Transmission Date: 20140711
  Serious: Yes (Other)
  Sender: FDA-Public Use
  Company Number: DE-BAYER-2013-133266

PATIENT
  Sex: Male

DRUGS (7)
  1. XARELTO [Suspect]
     Indication: CORONARY ARTERY DISEASE
     Dosage: 15 MG, UNK
     Dates: start: 20130715
  2. XARELTO [Interacting]
     Indication: ATRIAL FIBRILLATION
  3. XARELTO [Interacting]
     Indication: CEREBROVASCULAR ACCIDENT PROPHYLAXIS
  4. ASS [Interacting]
     Indication: CORONARY ARTERY DISEASE
     Dosage: 100 MG, UNK
  5. AMIODARONE [Interacting]
     Dosage: 200 MG, UNK
  6. AMLODIPINE [Suspect]
     Dosage: 5 MG, UNK
  7. PRAVASTATIN [Suspect]
     Dosage: 20 MG, UNK

REACTIONS (3)
  - Haemorrhage [Recovered/Resolved]
  - Pain in extremity [None]
  - Pain in extremity [None]
